FAERS Safety Report 5502724-1 (Version None)
Quarter: 2007Q4

REPORT INFORMATION
  Report Type: 
  Country: None (occurrence: None)
  Receive Date: 20071031
  Receipt Date: 20071023
  Transmission Date: 20080405
  Serious: Yes (Hospitalization, Other)
  Sender: FDA-Public Use
  Company Number: CA-ASTRAZENECA-2007UW23089

PATIENT
  Age: 25421 Day
  Sex: Female
  Weight: 67.7 kg

DRUGS (7)
  1. CRESTOR [Suspect]
     Indication: HYPERCHOLESTEROLAEMIA
     Route: 048
     Dates: start: 20070411
  2. RABEPRAZOLE SODIUM [Concomitant]
     Indication: GASTROOESOPHAGEAL REFLUX DISEASE
  3. ACTONEL [Concomitant]
     Indication: OSTEOPOROSIS
     Route: 048
  4. VITAMIN D [Concomitant]
     Indication: OSTEOPOROSIS
     Route: 048
  5. CALCIUM/MAGNESIUM [Concomitant]
     Indication: OSTEOPOROSIS
     Route: 048
  6. VITAMIN B COMPLEX CAP [Concomitant]
     Indication: VITAMIN SUPPLEMENTATION
     Route: 048
  7. OMEGA-3 [Concomitant]
     Indication: MEDICAL DIET
     Route: 048

REACTIONS (3)
  - BREAST CANCER [None]
  - HEART RATE IRREGULAR [None]
  - TACHYCARDIA [None]
